FAERS Safety Report 8190345-4 (Version None)
Quarter: 2012Q1

REPORT INFORMATION
  Report Type: 
  Country: None (occurrence: None)
  Receive Date: 20120307
  Receipt Date: 20120305
  Transmission Date: 20120608
  Serious: Yes (Other)
  Sender: FDA-Public Use
  Company Number: US-PFIZER INC-2012010608

PATIENT
  Sex: Female
  Weight: 47.619 kg

DRUGS (7)
  1. SYNTHROID [Concomitant]
     Dosage: UNK
  2. CELEBREX [Suspect]
     Indication: LUNG NEOPLASM
     Dosage: UNK
     Route: 048
     Dates: start: 20101201, end: 20111204
  3. CELEBREX [Suspect]
     Dosage: TWO CAPSULES OF 100MG DAILY
     Route: 048
     Dates: start: 20120101
  4. FLECAINIDE [Concomitant]
     Indication: HEART RATE IRREGULAR
     Dosage: 50 MG, UNK
  5. ADVAIR DISKUS 100/50 [Concomitant]
     Indication: DYSPNOEA
  6. ADVAIR DISKUS 100/50 [Concomitant]
     Indication: ASTHMA
     Dosage: UNK
  7. TIZANIDINE [Concomitant]
     Indication: INSOMNIA
     Dosage: 2 MG, DAILY AT NIGHT

REACTIONS (4)
  - NEOPLASM MALIGNANT [None]
  - HYPERTENSION [None]
  - DYSPNOEA [None]
  - CONTUSION [None]
